FAERS Safety Report 8614215-X (Version None)
Quarter: 2012Q3

REPORT INFORMATION
  Report Type: 
  Country: None (occurrence: None)
  Receive Date: 20120813
  Receipt Date: 20120813
  Transmission Date: 20120928
  Serious: Yes (Life-Threatening)
  Sender: FDA-Public Use
  Company Number: None

PATIENT
  Age: 86 Year
  Sex: Male
  Weight: 84 kg

DRUGS (1)
  1. CARVEDILOL [Suspect]
     Indication: ACUTE MYOCARDIAL INFARCTION
     Dosage: 6.25 MG BID PO
     Route: 048
     Dates: start: 20120807, end: 20120808

REACTIONS (3)
  - BRADYCARDIA [None]
  - SYNCOPE [None]
  - NAUSEA [None]
